FAERS Safety Report 7808910-X (Version None)
Quarter: 2011Q4

REPORT INFORMATION
  Report Type: 
  Country: None (occurrence: None)
  Receive Date: 20111012
  Receipt Date: 20111004
  Transmission Date: 20120403
  Serious: Yes (Death, Life-Threatening, Disabling)
  Sender: FDA-Public Use
  Company Number: JP-PFIZER INC-2011181415

PATIENT
  Age: 58 Year
  Sex: Male
  Weight: 43.3 kg

DRUGS (8)
  1. MADOPAR [Concomitant]
     Indication: PARKINSON'S DISEASE
     Dosage: UNK
     Route: 048
     Dates: end: 20110806
  2. VFEND [Suspect]
     Indication: BRONCHOPULMONARY ASPERGILLOSIS
     Dosage: 6 MG/KG, 2X/DAY
     Route: 041
     Dates: start: 20110729, end: 20110729
  3. BLADDERON [Concomitant]
  4. DOPS [Concomitant]
     Indication: PARKINSON'S DISEASE
     Dosage: 200 MG, 3X/DAY
     Route: 048
     Dates: end: 20110806
  5. VFEND [Suspect]
     Dosage: 4 MG/KG, 2X/DAY
     Route: 041
     Dates: start: 20110730, end: 20110806
  6. SELEGILINE HCL [Suspect]
     Indication: PARKINSON'S DISEASE
     Dosage: 2.5 MG, 2X/DAY
     Route: 048
     Dates: end: 20110806
  7. COMTAN [Concomitant]
     Indication: PARKINSON'S DISEASE
     Dosage: 100 MG, 4X/DAY
     Route: 048
     Dates: end: 20110806
  8. REQUIP [Concomitant]

REACTIONS (2)
  - HYPOGLYCAEMIA [None]
  - ALTERED STATE OF CONSCIOUSNESS [None]
